FAERS Safety Report 15987133 (Version 2)
Quarter: 2019Q2

REPORT INFORMATION
  Report Type: Spontaneous
  Country: FR (occurrence: FR)
  Receive Date: 20190220
  Receipt Date: 20190403
  Transmission Date: 20190711
  Serious: Yes (Life-Threatening)
  Sender: FDA-Public Use
  Company Number: FR-NOVOPROD-646616

PATIENT
  Age: 99 Year
  Sex: Female

DRUGS (1)
  1. NOVORAPID [Suspect]
     Active Substance: INSULIN ASPART
     Indication: DIABETES MELLITUS
     Dosage: 45 IU, QD
     Route: 058
     Dates: start: 20190117, end: 20190117

REACTIONS (3)
  - Product prescribing error [Unknown]
  - Hypoglycaemia [Recovered/Resolved]
  - Somnolence [Recovered/Resolved]

NARRATIVE: CASE EVENT DATE: 20190117
